FAERS Safety Report 10511164 (Version 1)
Quarter: 2014Q4

REPORT INFORMATION
  Report Type: Spontaneous
  Country: FR (occurrence: FR)
  Receive Date: 20141010
  Receipt Date: 20141010
  Transmission Date: 20150528
  Serious: Yes (Other)
  Sender: FDA-Public Use
  Company Number: FR-MYLANLABS-2014M1006599

PATIENT

DRUGS (3)
  1. VERAPAMIL [Suspect]
     Active Substance: VERAPAMIL HYDROCHLORIDE
     Dosage: 40 CAPSULES OF 240 MG (9.6 G)
     Route: 065
  2. INTRALIPID [Suspect]
     Active Substance: EGG PHOSPHOLIPIDS\GLYCERIN\SOYBEAN OIL
     Dosage: FOLLOWED BY CONTINUOUS INFUSION AT 0.20 ML.KG/MINUTE DURING 4 HOURS
     Route: 041
  3. INTRALIPID [Suspect]
     Active Substance: EGG PHOSPHOLIPIDS\GLYCERIN\SOYBEAN OIL
     Dosage: 100 ML BOLUS OF 20% FOLLOWED BY CONTINUOUS INFUSION
     Route: 040

REACTIONS (10)
  - Acute kidney injury [Unknown]
  - Systolic dysfunction [Unknown]
  - Sinus bradycardia [Recovering/Resolving]
  - Metabolic acidosis [Unknown]
  - Acute respiratory distress syndrome [Recovering/Resolving]
  - Overdose [Unknown]
  - Hypotension [Recovering/Resolving]
  - Hyperlactacidaemia [Unknown]
  - Hepatocellular injury [Unknown]
  - Hypertriglyceridaemia [Recovered/Resolved]
